FAERS Safety Report 15230923 (Version 2)
Quarter: 2018Q3

REPORT INFORMATION
  Report Type: Spontaneous
  Country: US (occurrence: US)
  Receive Date: 20180802
  Receipt Date: 20180907
  Transmission Date: 20181010
  Serious: No
  Sender: FDA-Public Use
  Company Number: PHHY2018US056077

PATIENT
  Sex: Female

DRUGS (1)
  1. SYSTANE PF [Suspect]
     Active Substance: POLYETHYLENE GLYCOL 400\PROPYLENE GLYCOL
     Indication: PRODUCT USED FOR UNKNOWN INDICATION
     Route: 047

REACTIONS (5)
  - Asthenia [Recovered/Resolved]
  - Pain in extremity [Recovered/Resolved]
  - Product quality issue [Unknown]
  - Musculoskeletal pain [Recovered/Resolved]
  - Peripheral swelling [Recovered/Resolved]
